FAERS Safety Report 8048238-9 (Version None)
Quarter: 2012Q1

REPORT INFORMATION
  Report Type: 
  Country: None (occurrence: None)
  Receive Date: 20120117
  Receipt Date: 20120110
  Transmission Date: 20120608
  Serious: Yes (Hospitalization, Other)
  Sender: FDA-Public Use
  Company Number: BR-BAYER-201018479LA

PATIENT
  Age: 63 Year
  Sex: Male

DRUGS (3)
  1. NEXAVAR [Suspect]
     Indication: HEPATIC NEOPLASM MALIGNANT
     Dosage: 400 MG, BID
     Route: 048
     Dates: start: 20091001, end: 20110601
  2. OMEPRAZOLE [Concomitant]
     Indication: ABDOMINAL PAIN
     Dosage: 1 DF, QD
     Route: 048
     Dates: start: 20090101
  3. NEXAVAR [Suspect]
     Dosage: 200 MG, BID
     Route: 048
     Dates: start: 20110601

REACTIONS (10)
  - AGITATION [None]
  - COMA [None]
  - ABDOMINAL PAIN [None]
  - LIMB INJURY [None]
  - SOMNOLENCE [None]
  - PRURITUS [None]
  - FALL [None]
  - ASTHENIA [None]
  - ABASIA [None]
  - CONFUSIONAL STATE [None]
